FAERS Safety Report 12521549 (Version 1)
Quarter: 2016Q3

REPORT INFORMATION
  Report Type: Spontaneous
  Country: CA (occurrence: CA)
  Receive Date: 20160701
  Receipt Date: 20160701
  Transmission Date: 20161109
  Serious: Yes (Hospitalization, Other)
  Sender: FDA-Public Use
  Company Number: CA-JNJFOC-20160622657

PATIENT
  Age: 2 Decade
  Sex: Female

DRUGS (1)
  1. FENTANYL. [Suspect]
     Active Substance: FENTANYL
     Indication: PRODUCT USED FOR UNKNOWN INDICATION
     Route: 065
     Dates: end: 20151002

REACTIONS (12)
  - Psychomotor hyperactivity [Unknown]
  - Loss of consciousness [Recovered/Resolved]
  - Vomiting [Unknown]
  - Hypoaesthesia [Unknown]
  - Muscle twitching [Unknown]
  - Overdose [Unknown]
  - Drug dependence [Unknown]
  - Abdominal pain upper [Unknown]
  - Insomnia [Unknown]
  - Drug withdrawal syndrome [Unknown]
  - Pain [Unknown]
  - Drug diversion [Unknown]
